FAERS Safety Report 20656650 (Version 1)
Quarter: 2022Q1

REPORT INFORMATION
  Report Type: Spontaneous
  Country: FR (occurrence: FR)
  Receive Date: 20220331
  Receipt Date: 20220331
  Transmission Date: 20220423
  Serious: Yes (Other)
  Sender: FDA-Public Use
  Company Number: None

PATIENT
  Age: 74 Year
  Sex: Male
  Weight: 61 kg

DRUGS (6)
  1. FLUOXETINE [Suspect]
     Active Substance: FLUOXETINE HYDROCHLORIDE
     Indication: Depression
     Dosage: 20 MILLIGRAM DAILY; 20 MG/DAY; FLUOXETINE HYDROCHLORIDE
     Route: 048
     Dates: end: 20220104
  2. POTASSIUM CHLORIDE [Suspect]
     Active Substance: POTASSIUM CHLORIDE
     Indication: Product used for unknown indication
     Dosage: 300 MILLIGRAM DAILY; 300 MG/DAY
     Route: 048
     Dates: end: 20220105
  3. VALPROATE SODIUM [Suspect]
     Active Substance: VALPROATE SODIUM
     Indication: Epilepsy
     Dosage: 3 DOSAGE FORMS DAILY; FILM-COATED TABLET WITH PROLONGED RELEASE, 3 DF/DAY; DEPAKINE CHRONO 500 MG, F
     Route: 048
     Dates: end: 20220107
  4. LEVOTHYROXINE [Concomitant]
     Active Substance: LEVOTHYROXINE
  5. PREDNISOLONE [Concomitant]
     Active Substance: PREDNISOLONE
  6. PHENOBARBITAL [Concomitant]
     Active Substance: PHENOBARBITAL

REACTIONS (1)
  - Parkinsonism [Recovering/Resolving]

NARRATIVE: CASE EVENT DATE: 20211201
